FAERS Safety Report 10607636 (Version 1)
Quarter: 2014Q4

REPORT INFORMATION
  Report Type: Spontaneous
  Country: US (occurrence: None)
  Receive Date: 20141124
  Receipt Date: 20141124
  Transmission Date: 20150529
  Serious: Yes (Disabling)
  Sender: FDA-Public Use
  Company Number: None

PATIENT
  Age: 74 Year
  Sex: Female
  Weight: 54.43 kg

DRUGS (1)
  1. CIPROFLOXACIN. [Suspect]
     Active Substance: CIPROFLOXACIN
     Indication: URINARY TRACT INFECTION
     Dosage: 7 PILLS
     Dates: start: 20140903

REACTIONS (5)
  - Urinary incontinence [None]
  - Gait disturbance [None]
  - Pain in extremity [None]
  - Arthralgia [None]
  - Neck pain [None]

NARRATIVE: CASE EVENT DATE: 20140907
